FAERS Safety Report 21753457 (Version 1)
Quarter: 2022Q4

REPORT INFORMATION
  Report Type: Spontaneous
  Country: US (occurrence: None)
  Receive Date: 20221219
  Receipt Date: 20221219
  Transmission Date: 20230112
  Serious: Yes (Life-Threatening)
  Sender: FDA-Public Use
  Company Number: None

PATIENT
  Age: 56 Year
  Sex: Male
  Weight: 92.2 kg

DRUGS (1)
  1. THYMOGLOBULIN [Suspect]
     Active Substance: LAPINE T-LYMPHOCYTE IMMUNE GLOBULIN
     Indication: Prophylaxis against transplant rejection
     Dosage: OTHER FREQUENCY : ONCE;?
     Route: 041
     Dates: start: 20221216

REACTIONS (2)
  - Cytokine release syndrome [None]
  - Thrombotic microangiopathy [None]

NARRATIVE: CASE EVENT DATE: 20221217
